FAERS Safety Report 9801470 (Version 1)
Quarter: 2014Q1

REPORT INFORMATION
  Report Type: Spontaneous
  Country: IL (occurrence: IL)
  Receive Date: 20140107
  Receipt Date: 20140107
  Transmission Date: 20141002
  Serious: Yes (Death, Other)
  Sender: FDA-Public Use
  Company Number: IL-JHP PHARMACEUTICALS, LLC-JHP201300808

PATIENT
  Age: 33 Year
  Sex: Male

DRUGS (3)
  1. COLY-MYCIN M PARENTERAL [Suspect]
     Indication: PNEUMONIA
     Dosage: 18 MILLION IU, UNK
     Route: 042
  2. PIPERACILLIN + TAZOBACTAM [Concomitant]
  3. HYDROCORTISONE [Concomitant]

REACTIONS (1)
  - Renal failure acute [Fatal]
